FAERS Safety Report 9767356 (Version 1)
Quarter: 2013Q4

REPORT INFORMATION
  Report Type: Spontaneous
  Country: CO (occurrence: None)
  Receive Date: 20131213
  Receipt Date: 20131213
  Transmission Date: 20140711
  Serious: Yes (Death, Hospitalization, Other)
  Sender: FDA-Public Use
  Company Number: CO-JNJFOC-20131108737

PATIENT
  Age: 79 Year
  Sex: Male

DRUGS (1)
  1. DACOGEN [Suspect]
     Indication: MYELODYSPLASTIC SYNDROME
     Dosage: 50 MG, IN 1 CYCLICAL, UNKNOWN
     Dates: start: 20130906

REACTIONS (4)
  - Pneumonia [None]
  - Respiratory acidosis [None]
  - Arrhythmia [None]
  - Platelet count decreased [None]
